FAERS Safety Report 17027359 (Version 1)
Quarter: 2019Q4

REPORT INFORMATION
  Report Type: Spontaneous
  Country: JP (occurrence: JP)
  Receive Date: 20191113
  Receipt Date: 20191113
  Transmission Date: 20200122
  Serious: Yes (Death)
  Sender: FDA-Public Use
  Company Number: JP-PFIZER INC-2019453209

PATIENT
  Age: 54 Year
  Sex: Female

DRUGS (3)
  1. CEFTRIAXONE. [Concomitant]
     Active Substance: CEFTRIAXONE
     Dosage: UNK
  2. ANAEMETRO 500MG [Suspect]
     Active Substance: METRONIDAZOLE
     Dosage: UNK, 2X/DAY
     Dates: start: 20191009
  3. ANAEMETRO 500MG [Suspect]
     Active Substance: METRONIDAZOLE
     Indication: INFECTION
     Dosage: UNK, 3X/DAY
     Dates: start: 20191008, end: 20191008

REACTIONS (2)
  - Off label use [Unknown]
  - Death [Fatal]
